FAERS Safety Report 20735241 (Version 2)
Quarter: 2022Q2

REPORT INFORMATION
  Report Type: Spontaneous
  Country: US (occurrence: US)
  Receive Date: 20220421
  Receipt Date: 20220517
  Transmission Date: 20220721
  Serious: No
  Sender: FDA-Public Use
  Company Number: US-PFIZER INC-202101243730

PATIENT
  Age: 31 Year
  Sex: Male

DRUGS (2)
  1. XELJANZ [Suspect]
     Active Substance: TOFACITINIB CITRATE
     Dosage: 5 MG
     Dates: start: 202108
  2. XELJANZ [Suspect]
     Active Substance: TOFACITINIB CITRATE
     Dosage: 5 MG, 2X/DAY (5MG ORAL TWICE DAILY )
     Route: 048

REACTIONS (6)
  - Arthralgia [Unknown]
  - Musculoskeletal stiffness [Unknown]
  - Hunger [Not Recovered/Not Resolved]
  - Increased appetite [Not Recovered/Not Resolved]
  - Mental disorder [Unknown]
  - Intentional product misuse [Unknown]
